FAERS Safety Report 13737563 (Version 1)
Quarter: 2017Q3

REPORT INFORMATION
  Report Type: Spontaneous
  Country: US (occurrence: US)
  Receive Date: 20170710
  Receipt Date: 20170710
  Transmission Date: 20171127
  Serious: Yes (Hospitalization)
  Sender: FDA-Public Use
  Company Number: US-SAOL THERAPEUTICS-2016SAO01035

PATIENT
  Age: 60 Year
  Sex: Female

DRUGS (5)
  1. MORPHINE [Suspect]
     Active Substance: MORPHINE
     Dosage: 1.2277 MG, \DAY
     Route: 037
     Dates: start: 20161029
  2. BACLOFEN. [Suspect]
     Active Substance: BACLOFEN
     Dosage: 2301.9 ?G, \DAY
     Route: 037
     Dates: start: 20161025, end: 20161029
  3. MORPHINE [Suspect]
     Active Substance: MORPHINE
     Dosage: 1.5346 MG, \DAY
     Route: 037
     Dates: start: 20161025, end: 20161029
  4. UNSPECIFIED ORAL MEDICATION [Concomitant]
     Active Substance: UNSPECIFIED INGREDIENT
     Dosage: UNK
     Route: 048
  5. BACLOFEN. [Suspect]
     Active Substance: BACLOFEN
     Dosage: 1841.5 ?G, \DAY
     Route: 037
     Dates: start: 20161029

REACTIONS (2)
  - Unresponsive to stimuli [Recovering/Resolving]
  - Overdose [Not Recovered/Not Resolved]

NARRATIVE: CASE EVENT DATE: 20161028
